FAERS Safety Report 4314598-5 (Version None)
Quarter: 2004Q1

REPORT INFORMATION
  Report Type: 
  Country: None (occurrence: None)
  Receive Date: 20040309
  Receipt Date: 20040225
  Transmission Date: 20041129
  Serious: Yes (Hospitalization)
  Sender: FDA-Public Use
  Company Number: TEST00303002916

PATIENT
  Age: 71 Year
  Sex: Male

DRUGS (6)
  1. ANDROGEL [Suspect]
     Indication: BLOOD TESTOSTERONE DECREASED
     Dosage: 5 G DAILY TD, DAILY TD, 2.5 G DAILY TD
     Dates: start: 20030521, end: 20030616
  2. ANDROGEL [Suspect]
     Indication: BLOOD TESTOSTERONE DECREASED
     Dosage: 5 G DAILY TD, DAILY TD, 2.5 G DAILY TD
     Dates: start: 20030617, end: 20030707
  3. ANDROGEL [Suspect]
     Indication: BLOOD TESTOSTERONE DECREASED
     Dosage: 5 G DAILY TD, DAILY TD, 2.5 G DAILY TD
     Dates: start: 20030708, end: 20030710
  4. SINTROM [Concomitant]
  5. CORDARONE [Concomitant]
  6. DIGOXIN [Concomitant]

REACTIONS (8)
  - BLOOD TESTOSTERONE INCREASED [None]
  - CARDIAC FAILURE CONGESTIVE [None]
  - DYSPNOEA [None]
  - ERECTILE DYSFUNCTION [None]
  - HAEMOPTYSIS [None]
  - MUSCULAR WEAKNESS [None]
  - NAUSEA [None]
  - TRICUSPID VALVE INCOMPETENCE [None]
